FAERS Safety Report 13390011 (Version 1)
Quarter: 2017Q1

REPORT INFORMATION
  Report Type: Report from Study
  Country: CA (occurrence: CA)
  Receive Date: 20170331
  Receipt Date: 20170331
  Transmission Date: 20170429
  Serious: Yes (Other)
  Sender: FDA-Public Use
  Company Number: CA-AMGEN-CANSL2017047209

PATIENT
  Age: 65 Year
  Sex: Female
  Weight: 50 kg

DRUGS (1)
  1. PROLIA [Suspect]
     Active Substance: DENOSUMAB
     Indication: BONE DISORDER
     Dosage: 60 MG, Q6MO
     Route: 058

REACTIONS (3)
  - Off label use [Unknown]
  - Vascular operation [Unknown]
  - Aortic aneurysm [Not Recovered/Not Resolved]
